FAERS Safety Report 8545237-5 (Version None)
Quarter: 2012Q3

REPORT INFORMATION
  Report Type: 
  Country: None (occurrence: None)
  Receive Date: 20120727
  Receipt Date: 20120724
  Transmission Date: 20120928
  Serious: Yes (Hospitalization)
  Sender: FDA-Public Use
  Company Number: US-ACTELION-A-US2012-69168

PATIENT

DRUGS (3)
  1. LASIX [Concomitant]
  2. VENTAVIS [Suspect]
     Indication: PULMONARY ARTERIAL HYPERTENSION
     Dosage: UNK
     Route: 055
     Dates: start: 20120718
  3. TRACLEER [Suspect]
     Indication: PULMONARY ARTERIAL HYPERTENSION
     Dosage: UNK
     Route: 048
     Dates: start: 20060101

REACTIONS (13)
  - CONDITION AGGRAVATED [None]
  - DEHYDRATION [None]
  - PRESYNCOPE [None]
  - HEADACHE [None]
  - HYPOTENSION [None]
  - DISORIENTATION [None]
  - NAUSEA [None]
  - MALAISE [None]
  - FALL [None]
  - DRUG DOSE OMISSION [None]
  - DIZZINESS [None]
  - DYSPNOEA [None]
  - DIARRHOEA [None]
